FAERS Safety Report 23584311 (Version 3)
Quarter: 2024Q2

REPORT INFORMATION
  Report Type: Report from Study
  Country: US (occurrence: US)
  Receive Date: 20240301
  Receipt Date: 20240610
  Transmission Date: 20240716
  Serious: Yes (Other)
  Sender: FDA-Public Use
  Company Number: US-ABBVIE-5657452

PATIENT
  Sex: Female

DRUGS (2)
  1. HUMIRA [Suspect]
     Active Substance: ADALIMUMAB
     Indication: Rheumatoid arthritis
     Dosage: FORM STRENGTH: 40MILLIGRAM
     Route: 058
     Dates: start: 20221128
  2. HUMIRA [Suspect]
     Active Substance: ADALIMUMAB
     Dosage: FORM STRENGTH: 40MILLIGRAM
     Route: 058

REACTIONS (5)
  - Exostosis [Recovered/Resolved]
  - Pyrexia [Recovering/Resolving]
  - Arthralgia [Recovering/Resolving]
  - Nervousness [Not Recovered/Not Resolved]
  - Pain in extremity [Unknown]
